FAERS Safety Report 4734420-2 (Version None)
Quarter: 2005Q3

REPORT INFORMATION
  Report Type: 
  Country: None (occurrence: None)
  Receive Date: 20050804
  Receipt Date: 20050725
  Transmission Date: 20060218
  Serious: Yes (Hospitalization)
  Sender: FDA-Public Use
  Company Number: CA-BRISTOL-MYERS SQUIBB COMPANY-13049317

PATIENT
  Age: 42 Year
  Sex: Female

DRUGS (3)
  1. AVALIDE [Suspect]
  2. GABAPENTIN [Concomitant]
  3. PANTOPRAZOLE [Concomitant]

REACTIONS (1)
  - ANGLE CLOSURE GLAUCOMA [None]
